FAERS Safety Report 24652439 (Version 1)
Quarter: 2024Q4

REPORT INFORMATION
  Report Type: Spontaneous
  Country: US (occurrence: US)
  Receive Date: 20241122
  Receipt Date: 20241122
  Transmission Date: 20250115
  Serious: No
  Sender: MERZ
  Company Number: US-Merz Pharmaceuticals GmbH-2024100000254

PATIENT

DRUGS (1)
  1. XEOMIN [Suspect]
     Active Substance: INCOBOTULINUMTOXINA
     Indication: Migraine
     Dates: start: 20241009, end: 20241009

REACTIONS (6)
  - Eyelid ptosis [Unknown]
  - Tinnitus [Unknown]
  - Malaise [Unknown]
  - Injection site pain [Unknown]
  - Injection site swelling [Unknown]
  - Off label use [Unknown]

NARRATIVE: CASE EVENT DATE: 20241001
